FAERS Safety Report 19520081 (Version 1)
Quarter: 2021Q3

REPORT INFORMATION
  Report Type: Spontaneous
  Country: US (occurrence: US)
  Receive Date: 20210712
  Receipt Date: 20210712
  Transmission Date: 20211014
  Serious: No
  Sender: FDA-Public Use
  Company Number: US-SECURA BIO, INC.-2021US002540

PATIENT
  Sex: Female
  Weight: 78 kg

DRUGS (1)
  1. COPIKTRA [Suspect]
     Active Substance: DUVELISIB
     Indication: NON-HODGKIN^S LYMPHOMA
     Dosage: 25 MG, BID
     Route: 048
     Dates: start: 20210204

REACTIONS (3)
  - Chills [Unknown]
  - Hypersomnia [Unknown]
  - Fatigue [Unknown]
